FAERS Safety Report 19232884 (Version 1)
Quarter: 2021Q2

REPORT INFORMATION
  Report Type: Spontaneous
  Country: US (occurrence: US)
  Receive Date: 20210507
  Receipt Date: 20210507
  Transmission Date: 20210717
  Serious: Yes (Other)
  Sender: FDA-Public Use
  Company Number: US-PFIZER INC-2021486585

PATIENT
  Age: 40 Year
  Sex: Male

DRUGS (5)
  1. ALPRAZOLAM. [Suspect]
     Active Substance: ALPRAZOLAM
     Indication: INSOMNIA
     Dosage: 1 MG, 2X/DAY
  2. ALPRAZOLAM. [Suspect]
     Active Substance: ALPRAZOLAM
     Indication: INTRUSIVE THOUGHTS
     Dosage: 1 MG, 2X/DAY
  3. ALPRAZOLAM. [Suspect]
     Active Substance: ALPRAZOLAM
     Indication: ANXIETY
     Dosage: 6 MG, DAILY
  4. ALPRAZOLAM. [Suspect]
     Active Substance: ALPRAZOLAM
     Dosage: SLOW TAPERING OF ALPRAZOLAM TO 0.25 MG EVERY 2 WEEKS
  5. ALPRAZOLAM. [Suspect]
     Active Substance: ALPRAZOLAM
     Indication: DEPRESSION
     Dosage: DECREASE MEDICATION AT A RATE OF 0.5 MG/WEEK

REACTIONS (9)
  - Homicidal ideation [Unknown]
  - Suicidal ideation [Unknown]
  - Irritability [Unknown]
  - Anxiety [Unknown]
  - Withdrawal syndrome [Unknown]
  - Insomnia [Unknown]
  - Dissociation [Recovered/Resolved]
  - Overdose [Unknown]
  - Intrusive thoughts [Unknown]
